FAERS Safety Report 10756344 (Version 2)
Quarter: 2015Q3

REPORT INFORMATION
  Report Type: Spontaneous
  Country: US (occurrence: US)
  Receive Date: 20150202
  Receipt Date: 20150701
  Transmission Date: 20151125
  Serious: Yes (Other)
  Sender: FDA-Public Use
  Company Number: US-PFIZER INC-2015040173

PATIENT

DRUGS (1)
  1. COLESTID [Suspect]
     Active Substance: COLESTIPOL HYDROCHLORIDE
     Dosage: UNK

REACTIONS (2)
  - Dysphagia [Unknown]
  - Choking [Unknown]
